FAERS Safety Report 25459931 (Version 2)
Quarter: 2025Q2

REPORT INFORMATION
  Report Type: Spontaneous
  Country: CN (occurrence: CN)
  Receive Date: 20250620
  Receipt Date: 20250625
  Transmission Date: 20250716
  Serious: Yes (Other)
  Sender: CHEPLAPHARM
  Company Number: CN-CHEPLA-2025007584

PATIENT
  Age: 15 Year
  Sex: Male

DRUGS (8)
  1. OLANZAPINE [Suspect]
     Active Substance: OLANZAPINE
     Indication: Affective disorder
     Dosage: APPROVAL NUMBER: H20160497?DAILY DOSE: 10 MILLIGRAM
     Route: 048
     Dates: start: 20250307, end: 20250522
  2. OLANZAPINE [Suspect]
     Active Substance: OLANZAPINE
     Indication: Emotional disorder
     Dosage: APPROVAL NUMBER: H20160497?DAILY DOSE: 10 MILLIGRAM
     Route: 048
     Dates: start: 20250307, end: 20250522
  3. OLANZAPINE [Suspect]
     Active Substance: OLANZAPINE
     Indication: Affective disorder
     Dosage: DAILY DOSE: 5 MILLIGRAM
     Route: 048
  4. OLANZAPINE [Suspect]
     Active Substance: OLANZAPINE
     Indication: Emotional disorder
     Dosage: DAILY DOSE: 5 MILLIGRAM
     Route: 048
  5. VENLAFAXINE HYDROCHLORIDE [Suspect]
     Active Substance: VENLAFAXINE HYDROCHLORIDE
     Indication: Affective disorder
     Dosage: DAILY DOSE: 225 MILLIGRAM
     Route: 048
     Dates: start: 20250402, end: 20250608
  6. VENLAFAXINE HYDROCHLORIDE [Suspect]
     Active Substance: VENLAFAXINE HYDROCHLORIDE
     Indication: Emotional disorder
     Dosage: DAILY DOSE: 225 MILLIGRAM
     Route: 048
     Dates: start: 20250402, end: 20250608
  7. VENLAFAXINE HYDROCHLORIDE [Suspect]
     Active Substance: VENLAFAXINE HYDROCHLORIDE
     Indication: Affective disorder
     Dosage: DAILY DOSE: 150 MILLIGRAM
     Route: 048
  8. VENLAFAXINE HYDROCHLORIDE [Suspect]
     Active Substance: VENLAFAXINE HYDROCHLORIDE
     Indication: Emotional disorder
     Dosage: DAILY DOSE: 150 MILLIGRAM
     Route: 048

REACTIONS (3)
  - Hypothyroidism [Recovering/Resolving]
  - Off label use [Not Recovered/Not Resolved]
  - Off label use [Not Recovered/Not Resolved]

NARRATIVE: CASE EVENT DATE: 20250307
